FAERS Safety Report 4846774-7 (Version None)
Quarter: 2005Q4

REPORT INFORMATION
  Report Type: 
  Country: None (occurrence: None)
  Receive Date: 20051201
  Receipt Date: 20051118
  Transmission Date: 20060501
  Serious: Yes (Life-Threatening, Hospitalization, Other)
  Sender: FDA-Public Use
  Company Number: 2005138265

PATIENT
  Age: 10 Year
  Sex: Female
  Weight: 48.9885 kg

DRUGS (2)
  1. GEODON [Suspect]
     Indication: MAJOR DEPRESSION
     Dosage: 40 MG (40 MG, 1 IN1 D)
     Dates: start: 20040101
  2. GEODON [Suspect]
     Indication: POST-TRAUMATIC STRESS DISORDER
     Dosage: 40 MG (40 MG, 1 IN1 D)
     Dates: start: 20040101

REACTIONS (12)
  - AGITATION [None]
  - ANGER [None]
  - CONDITION AGGRAVATED [None]
  - HALLUCINATION, VISUAL [None]
  - IMPAIRED SELF-CARE [None]
  - INCORRECT DOSE ADMINISTERED [None]
  - INSOMNIA [None]
  - LETHARGY [None]
  - MOOD SWINGS [None]
  - SUICIDAL IDEATION [None]
  - TREMOR [None]
  - WEIGHT INCREASED [None]
